FAERS Safety Report 8970878 (Version 2)
Quarter: 2013Q1

REPORT INFORMATION
  Report Type: Spontaneous
  Country: IT (occurrence: IT)
  Receive Date: 20121218
  Receipt Date: 20130118
  Transmission Date: 20140127
  Serious: Yes (Other)
  Sender: FDA-Public Use
  Company Number: IT-009507513-1212ITA006183

PATIENT
  Age: 1 Year
  Sex: Male
  Weight: 13 kg

DRUGS (2)
  1. SINGULAIR [Suspect]
     Indication: ASTHMA
     Dosage: UNK
     Dates: start: 20111220, end: 20111224
  2. SINGULAIR [Suspect]
     Dosage: 4 MG, QD
     Route: 048
     Dates: start: 20121205, end: 20121208

REACTIONS (7)
  - Restlessness [Recovering/Resolving]
  - Tremor [Unknown]
  - Insomnia [Unknown]
  - Diarrhoea [Unknown]
  - Abdominal pain upper [Unknown]
  - Decreased appetite [Unknown]
  - Thirst [Unknown]
